FAERS Safety Report 14821669 (Version 2)
Quarter: 2018Q2

REPORT INFORMATION
  Report Type: Report from Study
  Country: RO (occurrence: RO)
  Receive Date: 20180427
  Receipt Date: 20180504
  Transmission Date: 20180711
  Serious: Yes (Hospitalization, Other)
  Sender: FDA-Public Use
  Company Number: RO-EMD SERONO-9022764

PATIENT
  Age: 31 Year
  Sex: Female

DRUGS (3)
  1. BETASERC                           /00141801/ [Concomitant]
     Active Substance: BETAHISTINE
     Indication: MULTIPLE SCLEROSIS
     Route: 048
     Dates: start: 20171027
  2. MILGAMMA N                         /00176001/ [Concomitant]
     Indication: MULTIPLE SCLEROSIS
     Route: 048
     Dates: start: 20171027
  3. REBIF [Suspect]
     Active Substance: INTERFERON BETA-1A
     Indication: MULTIPLE SCLEROSIS
     Route: 058

REACTIONS (8)
  - Influenza [Recovered/Resolved]
  - Calcium deficiency [Recovered/Resolved]
  - Iron deficiency [Recovered/Resolved]
  - Hypoaesthesia [Recovered/Resolved with Sequelae]
  - Hypokalaemia [Recovered/Resolved]
  - Feeling abnormal [Recovered/Resolved with Sequelae]
  - Mobility decreased [Recovered/Resolved]
  - Gait disturbance [Unknown]

NARRATIVE: CASE EVENT DATE: 2017
